FAERS Safety Report 5207806-X (Version None)
Quarter: 2006Q4

REPORT INFORMATION
  Report Type: 
  Country: None (occurrence: None)
  Receive Date: 20061030
  Receipt Date: 20051019
  Transmission Date: 20070319
  Serious: No
  Sender: FDA-Public Use
  Company Number: 2005CT000328

PATIENT
  Age: 54 Year
  Sex: Female
  Weight: 74.3899 kg

DRUGS (11)
  1. VENTAVIS [Suspect]
     Indication: PULMONARY HYPERTENSION
     Dosage: 5 UG; 6 TO 9 X/DAY; INH
     Route: 055
     Dates: start: 20050917, end: 20051019
  2. PREDNISONE [Concomitant]
  3. IMURAN [Concomitant]
  4. TRACLEER [Concomitant]
  5. SPIRONOLACTONE [Concomitant]
  6. LEVOTHYROXINE SODIUM [Concomitant]
  7. ACTONEL [Concomitant]
  8. OS-CAL D [Concomitant]
  9. KLOR-CON [Concomitant]
  10. TRAZODONE HCL [Concomitant]
  11. WARFARIN SODIUM [Concomitant]

REACTIONS (2)
  - HEADACHE [None]
  - ORAL MUCOSAL BLISTERING [None]
